FAERS Safety Report 13120709 (Version 1)
Quarter: 2017Q1

REPORT INFORMATION
  Report Type: Report from Study
  Country: US (occurrence: US)
  Receive Date: 20170117
  Receipt Date: 20170117
  Transmission Date: 20170428
  Serious: Yes (Hospitalization)
  Sender: FDA-Public Use
  Company Number: US-ROCHE-1871274

PATIENT
  Age: 27 Year
  Sex: Male

DRUGS (5)
  1. VINCRISTINE [Suspect]
     Active Substance: VINCRISTINE
     Indication: HODGKIN^S DISEASE
     Dosage: DATE OF LAST DOSE PRIOR TO SAE: 30/DEC/2008, ON DAYS 1 AND 15 OF A 28 DAY CYCLE
     Route: 042
     Dates: start: 20081021
  2. BLEOMYCIN [Suspect]
     Active Substance: BLEOMYCIN SULFATE
     Indication: HODGKIN^S DISEASE
     Dosage: DATE OF LAST DOSE PRIOR TO SAE: 30/DEC/2008, ON DAYS 1 AND 15 OF A 28 DAY CYCLE
     Route: 042
     Dates: start: 20081021
  3. DOXORUBICIN [Suspect]
     Active Substance: DOXORUBICIN
     Indication: HODGKIN^S DISEASE
     Dosage: DATE OF LAST DOSE PRIOR TO SAE: 30/DEC/2008, ON DAYS 1 AND 15 OF A 28 DAY CYCLE
     Route: 042
     Dates: start: 20081021
  4. BEVACIZUMAB [Suspect]
     Active Substance: BEVACIZUMAB
     Indication: HODGKIN^S DISEASE
     Dosage: DATE OF LAST DOSE PRIOR TO SAE: 30/DEC/2008, ON DAYS 1 AND 15 OF A 28 DAY CYCLE
     Route: 042
     Dates: start: 20081021
  5. DACARBAZINE. [Suspect]
     Active Substance: DACARBAZINE
     Indication: HODGKIN^S DISEASE
     Dosage: DATE OF LAST DOSE PRIOR TO SAE: 30/DEC/2008, ON DAYS 1 AND 15 OF A 28 DAY CYCLE
     Route: 042
     Dates: start: 20081021

REACTIONS (1)
  - Pleural effusion [Not Recovered/Not Resolved]

NARRATIVE: CASE EVENT DATE: 20090107
